FAERS Safety Report 16132617 (Version 1)
Quarter: 2019Q1

REPORT INFORMATION
  Report Type: Spontaneous
  Country: US (occurrence: US)
  Receive Date: 20190329
  Receipt Date: 20190329
  Transmission Date: 20190418
  Serious: Yes (Congenital Anomaly, Other)
  Sender: FDA-Public Use
  Company Number: US-APOTEX-2019AP010250

PATIENT
  Sex: Male

DRUGS (1)
  1. DASATINIB. [Suspect]
     Active Substance: DASATINIB
     Indication: PRODUCT USED FOR UNKNOWN INDICATION
     Dosage: UNK
     Route: 064

REACTIONS (5)
  - Foetal exposure during pregnancy [Unknown]
  - Bicuspid aortic valve [Unknown]
  - Ventricular septal defect [Unknown]
  - Atrial septal defect [Unknown]
  - Aorta hypoplasia [Unknown]
